FAERS Safety Report 17634463 (Version 3)
Quarter: 2022Q1

REPORT INFORMATION
  Report Type: Spontaneous
  Country: DE (occurrence: DE)
  Receive Date: 20200406
  Receipt Date: 20220224
  Transmission Date: 20220423
  Serious: Yes (Hospitalization, Other)
  Sender: FDA-Public Use
  Company Number: DE-NOVARTISPH-NVSC2020DE093075

PATIENT
  Sex: Male
  Weight: 84 kg

DRUGS (6)
  1. LEVETIRACETAM [Interacting]
     Active Substance: LEVETIRACETAM
     Indication: Craniocerebral injury
     Dosage: 2 DF, BID (500-0-500) IN THE MORNING AND AND IN THE EVENING
     Route: 065
     Dates: start: 2019, end: 2019
  2. LEVETIRACETAM [Interacting]
     Active Substance: LEVETIRACETAM
     Dosage: 2 DF, BID (250 MG, IN THE MORNING AND EVENING)
     Route: 065
     Dates: start: 2019, end: 20191228
  3. LEVETIRACETAM [Interacting]
     Active Substance: LEVETIRACETAM
     Dosage: 2 DF, BID (250 MG, IN THE MORNING AND EVENING) (AMBIGUOUSLY REPORTED)
     Route: 065
     Dates: start: 2019, end: 20191229
  4. NADROPARIN CALCIUM [Concomitant]
     Active Substance: NADROPARIN CALCIUM
     Indication: Product used for unknown indication
     Dosage: UNK
     Route: 065
     Dates: start: 2019, end: 20191007
  5. IBUPROFEN [Concomitant]
     Active Substance: IBUPROFEN
     Indication: Product used for unknown indication
     Dosage: UNK
     Route: 065
     Dates: start: 2019, end: 2019
  6. PANTOPRAZOLE [Concomitant]
     Active Substance: PANTOPRAZOLE
     Indication: Product used for unknown indication
     Dosage: UNK
     Route: 065
     Dates: start: 2019, end: 2019

REACTIONS (18)
  - Loss of consciousness [Recovered/Resolved]
  - Suicidal ideation [Unknown]
  - Depression [Recovering/Resolving]
  - Drug interaction [Unknown]
  - Immune system disorder [Unknown]
  - Faeces soft [Unknown]
  - Parosmia [Unknown]
  - Taste disorder [Recovering/Resolving]
  - Diarrhoea [Recovered/Resolved]
  - Somatic symptom disorder [Unknown]
  - Weight decreased [Unknown]
  - Decreased appetite [Recovered/Resolved]
  - Insomnia [Recovering/Resolving]
  - Dyspnoea [Recovered/Resolved]
  - Anaemia [Recovering/Resolving]
  - Muscle spasms [Recovered/Resolved]
  - Abdominal pain [Recovering/Resolving]
  - Product use in unapproved indication [Unknown]

NARRATIVE: CASE EVENT DATE: 20191001
